FAERS Safety Report 10233505 (Version 1)
Quarter: 2014Q2

REPORT INFORMATION
  Report Type: Other
  Country: GB (occurrence: GB)
  Receive Date: 20140612
  Receipt Date: 20140612
  Transmission Date: 20141212
  Serious: Yes (Hospitalization)
  Sender: FDA-Public Use
  Company Number: GB-PERRIGO-14GB005773

PATIENT
  Age: 40 Year
  Sex: Female

DRUGS (6)
  1. NAPROXEN 250MG 16028/0144 [Suspect]
     Indication: ARTHRITIS
     Dosage: 500 MG, BID
     Route: 048
  2. NAPROXEN 250MG 16028/0144 [Suspect]
     Indication: CARPAL TUNNEL SYNDROME
  3. CODEINE [Concomitant]
     Indication: PRODUCT USED FOR UNKNOWN INDICATION
     Route: 065
  4. FLUOXETINE [Concomitant]
     Indication: PRODUCT USED FOR UNKNOWN INDICATION
     Route: 065
  5. NICOTINE REPLACEMENT THERAPY [Concomitant]
     Indication: SMOKING CESSATION THERAPY
     Route: 065
  6. PARACETAMOL [Concomitant]
     Indication: PRODUCT USED FOR UNKNOWN INDICATION
     Route: 065

REACTIONS (1)
  - Gastric ulcer perforation [Recovering/Resolving]
